FAERS Safety Report 8059342-3 (Version None)
Quarter: 2012Q1

REPORT INFORMATION
  Report Type: 
  Country: None (occurrence: None)
  Receive Date: 20120120
  Receipt Date: 20120120
  Transmission Date: 20120608
  Serious: No
  Sender: FDA-Public Use
  Company Number: None

PATIENT
  Age: 55 Year
  Sex: Female
  Weight: 79.378 kg

DRUGS (1)
  1. SINGULAIR [Suspect]
     Indication: ASTHMA
     Dosage: 60 MG
     Route: 048
     Dates: start: 20070101, end: 20120101

REACTIONS (6)
  - HALLUCINATION [None]
  - ANXIETY [None]
  - CONFUSIONAL STATE [None]
  - ABNORMAL DREAMS [None]
  - DEPRESSION [None]
  - DISORIENTATION [None]
